FAERS Safety Report 6120587-0 (Version None)
Quarter: 2009Q1

REPORT INFORMATION
  Report Type: 
  Country: None (occurrence: None)
  Receive Date: 20090312
  Receipt Date: 20090312
  Transmission Date: 20090719
  Serious: Yes (Life-Threatening)
  Sender: FDA-Public Use
  Company Number: None

PATIENT
  Age: 9 Year
  Sex: Female
  Weight: 36.8 kg

DRUGS (4)
  1. THALIDOMIDE [Suspect]
     Indication: GLIOBLASTOMA MULTIFORME
     Dosage: 200 MG QD PO
     Route: 048
  2. TRICOR [Suspect]
     Indication: GLIOBLASTOMA MULTIFORME
     Dosage: 96 MG QD PO
     Route: 048
  3. CELEBREX [Suspect]
     Dosage: 100 MG BID PO
     Route: 048
  4. CYCLOPHOSPHAMIDE [Suspect]
     Dosage: 100 MG QD PO
     Route: 048

REACTIONS (4)
  - HAEMOGLOBIN ABNORMAL [None]
  - LYMPHOCYTE COUNT ABNORMAL [None]
  - NEUTROPHIL COUNT ABNORMAL [None]
  - WHITE BLOOD CELL COUNT ABNORMAL [None]
